FAERS Safety Report 21295300 (Version 3)
Quarter: 2022Q4

REPORT INFORMATION
  Report Type: Report from Study
  Country: US (occurrence: US)
  Receive Date: 20220905
  Receipt Date: 20221118
  Transmission Date: 20230113
  Serious: Yes (Other)
  Sender: FDA-Public Use
  Company Number: US-ABBVIE-22K-163-4528891-00

PATIENT
  Age: 74 Year
  Sex: Male
  Weight: 90.718 kg

DRUGS (2)
  1. HUMIRA [Suspect]
     Active Substance: ADALIMUMAB
     Indication: Crohn^s disease
     Dosage: STRENGTH 40 MG
     Route: 058
     Dates: start: 2015
  2. HUMIRA [Suspect]
     Active Substance: ADALIMUMAB
     Dosage: STRENGTH 40 MG
     Route: 058

REACTIONS (5)
  - Pharyngeal haemorrhage [Recovered/Resolved]
  - Anal haemorrhage [Recovered/Resolved]
  - Internal haemorrhage [Unknown]
  - Haemorrhage [Unknown]
  - Illness [Unknown]

NARRATIVE: CASE EVENT DATE: 20220901
